FAERS Safety Report 8270443-7 (Version None)
Quarter: 2012Q2

REPORT INFORMATION
  Report Type: 
  Country: None (occurrence: None)
  Receive Date: 20120410
  Receipt Date: 20120405
  Transmission Date: 20120825
  Serious: Yes (Death)
  Sender: FDA-Public Use
  Company Number: PHEH2012US007582

PATIENT
  Age: 60 Year
  Sex: Male

DRUGS (3)
  1. ACIPHEX [Concomitant]
  2. TASIGNA [Suspect]
     Indication: SMALL INTESTINE CARCINOMA
     Dosage: 200 MG, Q12H
     Route: 048
     Dates: start: 20120210
  3. TRAMADOL HCL [Concomitant]

REACTIONS (1)
  - DEATH [None]
